FAERS Safety Report 22390432 (Version 1)
Quarter: 2023Q2

REPORT INFORMATION
  Report Type: Spontaneous
  Country: IT (occurrence: IT)
  Receive Date: 20230531
  Receipt Date: 20230531
  Transmission Date: 20230722
  Serious: Yes (Other)
  Sender: FDA-Public Use
  Company Number: None

PATIENT
  Age: 57 Year
  Sex: Female
  Weight: 53 kg

DRUGS (4)
  1. ARIPIPRAZOLE [Suspect]
     Active Substance: ARIPIPRAZOLE
     Indication: Major depression
     Dosage: 5 MG, QD (5MG TABLETS; 1 TABLET /DAY)
     Route: 048
     Dates: start: 20230330, end: 20230417
  2. TRIAZOLAM [Concomitant]
     Active Substance: TRIAZOLAM
     Indication: Insomnia
     Dosage: 0.25 MILLIGRAM (SONGAR 0.25 MG AS NEEDED)
     Route: 048
  3. CITALOPRAM [Concomitant]
     Active Substance: CITALOPRAM HYDROBROMIDE
     Indication: Depression
     Dosage: 40 MG, QD (40 MG TABLETS;1 TABLET /DAY)
     Route: 048
  4. QUETIAPINE [Concomitant]
     Active Substance: QUETIAPINE
     Indication: Depression
     Dosage: 50 MG, BID (50 MG 1 TABLET 2 TIMES/ DAY)
     Route: 048

REACTIONS (3)
  - Akathisia [Unknown]
  - Anxiety [Unknown]
  - Off label use [Unknown]

NARRATIVE: CASE EVENT DATE: 20230401
